FAERS Safety Report 15433125 (Version 1)
Quarter: 2018Q3

REPORT INFORMATION
  Report Type: Spontaneous
  Country: US (occurrence: US)
  Receive Date: 20180927
  Receipt Date: 20180927
  Transmission Date: 20181010
  Serious: No
  Sender: FDA-Public Use
  Company Number: US-NOVEN PHARMACEUTICALS, INC.-US2018000105

PATIENT

DRUGS (5)
  1. AMBIEN [Concomitant]
     Active Substance: ZOLPIDEM TARTRATE
  2. COMBIPATCH [Suspect]
     Active Substance: ESTRADIOL\NORETHINDRONE ACETATE
     Indication: HORMONE REPLACEMENT THERAPY
     Dosage: 0.05/0.25 MG, UNKNOWN
     Route: 062
     Dates: start: 20171211
  3. LAMICTAL [Concomitant]
     Active Substance: LAMOTRIGINE
  4. LITHIUM. [Concomitant]
     Active Substance: LITHIUM
  5. ABILIFY [Concomitant]
     Active Substance: ARIPIPRAZOLE

REACTIONS (3)
  - No adverse event [Unknown]
  - Product administered at inappropriate site [Unknown]
  - Product adhesion issue [Unknown]
